FAERS Safety Report 8180159-3 (Version None)
Quarter: 2012Q1

REPORT INFORMATION
  Report Type: 
  Country: None (occurrence: None)
  Receive Date: 20120302
  Receipt Date: 20120220
  Transmission Date: 20120608
  Serious: Yes (Other)
  Sender: FDA-Public Use
  Company Number: FR-SANOFI-AVENTIS-2012SA013577

PATIENT

DRUGS (2)
  1. ATENOLOL AND CHLORTHALIDONE [Suspect]
     Route: 065
  2. ATENOLOL AND CHLORTHALIDONE [Suspect]
     Indication: MYOCARDIAL INFARCTION
     Route: 065

REACTIONS (1)
  - CARDIAC DISORDER [None]
